FAERS Safety Report 7914117-8 (Version None)
Quarter: 2011Q4

REPORT INFORMATION
  Report Type: 
  Country: None (occurrence: None)
  Receive Date: 20111110
  Receipt Date: 20111107
  Transmission Date: 20120403
  Serious: Yes (Other)
  Sender: FDA-Public Use
  Company Number: AUR-APL-2011-05739

PATIENT
  Age: 49 Year
  Sex: Male
  Weight: 100 kg

DRUGS (6)
  1. RISPERIDONE [Suspect]
     Indication: AFFECTIVE DISORDER
     Dosage: 2 MG (1 MG, 2 IN 1 D), ORAL
     Route: 048
     Dates: start: 20110901, end: 20110930
  2. PROPRANOLOL [Concomitant]
  3. DIAZEPAM [Concomitant]
  4. BUSPIRONE HCL [Concomitant]
  5. ZOPICLONE (ZOPICLONE) [Concomitant]
  6. FLUOXETINE HYDROCHLORIDE [Concomitant]

REACTIONS (1)
  - NOCTURIA [None]
